FAERS Safety Report 4417485-7 (Version None)
Quarter: 2004Q3

REPORT INFORMATION
  Report Type: 
  Country: None (occurrence: None)
  Receive Date: 20040804
  Receipt Date: 20040720
  Transmission Date: 20050211
  Serious: Yes (Other)
  Sender: FDA-Public Use
  Company Number: A-US2004-06934

PATIENT
  Age: 37 Year
  Sex: Male
  Weight: 60.3 kg

DRUGS (1)
  1. ZAVESCA [Suspect]
     Indication: GAUCHER'S DISEASE
     Dosage: 100 MG, TID,ORAL
     Route: 048
     Dates: start: 20010907, end: 20040716

REACTIONS (3)
  - MACULOPATHY [None]
  - RETINOPATHY [None]
  - VISUAL DISTURBANCE [None]
